FAERS Safety Report 6026215-7 (Version None)
Quarter: 2008Q4

REPORT INFORMATION
  Report Type: 
  Country: None (occurrence: None)
  Receive Date: 20081230
  Receipt Date: 20081215
  Transmission Date: 20090506
  Serious: Yes (Other)
  Sender: FDA-Public Use
  Company Number: 2008S1022284

PATIENT
  Age: 65 Year
  Sex: Female

DRUGS (1)
  1. THIORIDAZINE HCL [Suspect]
     Indication: SCHIZOPHRENIA

REACTIONS (1)
  - PARKINSONISM [None]
